FAERS Safety Report 25670563 (Version 1)
Quarter: 2025Q3

REPORT INFORMATION
  Report Type: Spontaneous
  Country: US (occurrence: None)
  Receive Date: 20250812
  Receipt Date: 20250812
  Transmission Date: 20251020
  Serious: Yes (Death)
  Sender: FDA-CTU
  Company Number: None

PATIENT
  Age: 78 Year
  Sex: Female

DRUGS (7)
  1. REVLIMID [Suspect]
     Active Substance: LENALIDOMIDE
     Indication: Plasma cell myeloma
     Dosage: FREQUENCY : DAILY;?
     Route: 048
     Dates: start: 20240617, end: 20250804
  2. ALENDRONATE [Concomitant]
     Active Substance: ALENDRONATE SODIUM
  3. folic aicd [Concomitant]
  4. LOPERAMIDE [Concomitant]
     Active Substance: LOPERAMIDE
  5. dexametnasone [Concomitant]
  6. VALACYCLOVIR [Concomitant]
     Active Substance: VALACYCLOVIR HYDROCHLORIDE
  7. VELCADE [Concomitant]
     Active Substance: BORTEZOMIB

REACTIONS (1)
  - Death [None]

NARRATIVE: CASE EVENT DATE: 20250804
